FAERS Safety Report 4822949-8 (Version None)
Quarter: 2005Q4

REPORT INFORMATION
  Report Type: 
  Country: None (occurrence: None)
  Receive Date: 20051104
  Receipt Date: 20051020
  Transmission Date: 20060501
  Serious: Yes (Death)
  Sender: FDA-Public Use
  Company Number: 8012862

PATIENT
  Age: 16 Year
  Sex: Male

DRUGS (3)
  1. KEPPRA [Suspect]
     Indication: GRAND MAL CONVULSION
     Dosage: 1500 MG 2/D PO
     Route: 048
     Dates: start: 20050701, end: 20051020
  2. KEFLEX [Concomitant]
  3. ADVAIR DISKUS 100/50 [Concomitant]

REACTIONS (1)
  - DEATH [None]
